FAERS Safety Report 5077737-7 (Version None)
Quarter: 2006Q3

REPORT INFORMATION
  Report Type: 
  Country: None (occurrence: None)
  Receive Date: 20060810
  Receipt Date: 20060601
  Transmission Date: 20061208
  Serious: Yes (Hospitalization)
  Sender: FDA-Public Use
  Company Number: FR-ABBOTT-06P-056-0334844-00

PATIENT
  Sex: Female

DRUGS (5)
  1. MONOZECLAR [Suspect]
     Indication: TONSILLITIS
     Route: 048
     Dates: start: 20060420, end: 20060424
  2. IBUPROFEN [Concomitant]
     Indication: TONSILLITIS
     Route: 048
     Dates: start: 20060420, end: 20060424
  3. BICLOTYMOL [Concomitant]
     Indication: TONSILLITIS
     Dates: start: 20060420, end: 20060424
  4. LEVOTHYROXINE SODIUM [Concomitant]
     Indication: HYPOTHYROIDISM
  5. CLOPIDOGREL [Concomitant]
     Indication: PHLEBITIS

REACTIONS (3)
  - OEDEMA PERIPHERAL [None]
  - RASH GENERALISED [None]
  - RASH PUSTULAR [None]
